FAERS Safety Report 8103909-0 (Version None)
Quarter: 2012Q1

REPORT INFORMATION
  Report Type: 
  Country: None (occurrence: None)
  Receive Date: 20120201
  Receipt Date: 20120124
  Transmission Date: 20120608
  Serious: Yes (Hospitalization)
  Sender: FDA-Public Use
  Company Number: PHEH2012US002166

PATIENT
  Sex: Male
  Weight: 88 kg

DRUGS (2)
  1. AMITRIPTYLINE HCL [Concomitant]
     Indication: DEPRESSION
     Dosage: UNK
  2. AMLODIPINE BESYLATE AND BENAZEPRIL HCL [Suspect]
     Indication: HYPERTENSION
     Dosage: 5/10 MG ONCE DAILY
     Dates: start: 20120114, end: 20120116

REACTIONS (3)
  - DIZZINESS [None]
  - GASTROENTERITIS [None]
  - VOMITING [None]
